FAERS Safety Report 13640562 (Version 1)
Quarter: 2017Q2

REPORT INFORMATION
  Report Type: Spontaneous
  Country: TW (occurrence: TW)
  Receive Date: 20170611
  Receipt Date: 20170611
  Transmission Date: 20170830
  Serious: Yes (Other)
  Sender: FDA-Public Use
  Company Number: TW-MYLANLABS-2017M1032769

PATIENT

DRUGS (2)
  1. CLOZAPINE. [Suspect]
     Active Substance: CLOZAPINE
     Indication: SCHIZOPHRENIA
     Dosage: UNK
  2. CLOZAPINE. [Suspect]
     Active Substance: CLOZAPINE
     Dosage: 350 MG, UNK
     Route: 065

REACTIONS (6)
  - Social avoidant behaviour [Unknown]
  - Dizziness [Unknown]
  - Psychotic disorder [Unknown]
  - Presyncope [Unknown]
  - Refusal of treatment by patient [Unknown]
  - Apathy [Unknown]
